FAERS Safety Report 12801837 (Version 1)
Quarter: 2016Q4

REPORT INFORMATION
  Report Type: Report from Study
  Country: US (occurrence: US)
  Receive Date: 20161003
  Receipt Date: 20161003
  Transmission Date: 20170207
  Serious: Yes (Other)
  Sender: FDA-Public Use
  Company Number: US-AMGEN-USASL2016134330

PATIENT

DRUGS (1)
  1. KYPROLIS [Suspect]
     Active Substance: CARFILZOMIB
     Indication: PRODUCT USED FOR UNKNOWN INDICATION
     Dosage: UNK
     Route: 065

REACTIONS (20)
  - Dyspnoea [Unknown]
  - Retinal detachment [Unknown]
  - Chorioretinal scar [Unknown]
  - Chest pain [Unknown]
  - Acute kidney injury [Unknown]
  - Vein disorder [Unknown]
  - Asthenia [Unknown]
  - Back pain [Unknown]
  - Constipation [Unknown]
  - Cellulitis [Unknown]
  - Retinal tear [Unknown]
  - Hyperkalaemia [Unknown]
  - Renal disorder [Unknown]
  - Hypercalcaemia [Unknown]
  - Proteinuria [Unknown]
  - Neutropenia [Unknown]
  - Essential hypertension [Unknown]
  - Chronic kidney disease [Unknown]
  - Refraction disorder [Unknown]
  - Ureteral disorder [Unknown]

NARRATIVE: CASE EVENT DATE: 20151106
